FAERS Safety Report 10009731 (Version 1)
Quarter: 2014Q1

REPORT INFORMATION
  Report Type: Spontaneous
  Country: US (occurrence: US)
  Receive Date: 20140312
  Receipt Date: 20140312
  Transmission Date: 20141002
  Serious: No
  Sender: FDA-Public Use
  Company Number: US-INCYTE CORPORATION-2012IN002672

PATIENT
  Sex: Female
  Weight: 45.35 kg

DRUGS (2)
  1. JAKAFI [Suspect]
     Indication: BLOOD DISORDER
     Dosage: 5 MG, BID
     Route: 048
     Dates: start: 20120309
  2. PROCRIT [Concomitant]

REACTIONS (1)
  - Malaise [Unknown]
